FAERS Safety Report 14237608 (Version 1)
Quarter: 2017Q4

REPORT INFORMATION
  Report Type: Spontaneous
  Country: FR (occurrence: FR)
  Receive Date: 20171129
  Receipt Date: 20171129
  Transmission Date: 20180321
  Serious: Yes (Death)
  Sender: FDA-Public Use
  Company Number: FR-MALLINCKRODT-T201704682

PATIENT
  Age: 68 Year
  Sex: Male

DRUGS (9)
  1. INIPOMP [Suspect]
     Active Substance: PANTOPRAZOLE SODIUM
     Indication: PROPHYLAXIS
     Dosage: 360 MG, EVERY DAY
     Route: 042
     Dates: start: 20171026
  2. HEPARIN [Suspect]
     Active Substance: HEPARIN SODIUM
     Indication: ATRIAL FIBRILLATION
  3. ZYVOXID [Suspect]
     Active Substance: LINEZOLID
     Indication: OSTEITIS
     Dosage: 10800 MG, EVERY DAY
     Route: 042
     Dates: start: 20171025
  4. OFIRMEV [Suspect]
     Active Substance: ACETAMINOPHEN
     Indication: ANALGESIC THERAPY
     Dosage: 1.5 G, EVERY DAY
     Route: 042
     Dates: start: 20171026
  5. HEPARIN [Suspect]
     Active Substance: HEPARIN SODIUM
     Indication: ARRHYTHMIA
     Dosage: 1 DF, EVERY DAY
     Route: 042
     Dates: start: 20171026
  6. FLAGYL [Suspect]
     Active Substance: METRONIDAZOLE\METRONIDAZOLE HYDROCHLORIDE
     Indication: OSTEITIS
     Dosage: 13500 MG, EVERY DAY
     Dates: start: 20171025
  7. CEFTRIAXONE. [Suspect]
     Active Substance: CEFTRIAXONE
     Indication: OSTEITIS
     Dosage: 6 G, UNK
     Route: 042
     Dates: start: 20171025
  8. NORADRENALIN                       /00127501/ [Suspect]
     Active Substance: NOREPINEPHRINE\NOREPINEPHRINE BITARTRATE
     Indication: CIRCULATORY COLLAPSE
     Dosage: 41.8 MG
     Route: 042
     Dates: start: 20171025
  9. LASILIX [Suspect]
     Active Substance: FUROSEMIDE
     Indication: SODIUM RETENTION
     Dosage: 500 MG, QD
     Route: 042
     Dates: start: 20171025

REACTIONS (2)
  - Shock haemorrhagic [Fatal]
  - Retroperitoneal haematoma [Fatal]

NARRATIVE: CASE EVENT DATE: 20171102
